FAERS Safety Report 16928359 (Version 1)
Quarter: 2019Q4

REPORT INFORMATION
  Report Type: Spontaneous
  Country: US (occurrence: US)
  Receive Date: 20190823
  Receipt Date: 20190823
  Transmission Date: 20200122
  Serious: No
  Sender: FDA-Public Use
  Company Number: None

PATIENT
  Age: 65 Year
  Sex: Male
  Weight: 76.56 kg

DRUGS (1)
  1. ERBITUX [Suspect]
     Active Substance: CETUXIMAB
     Dates: start: 20190624, end: 20190812

REACTIONS (3)
  - Gastrostomy tube site complication [None]
  - Abscess [None]
  - Bacterial infection [None]

NARRATIVE: CASE EVENT DATE: 20190812
